FAERS Safety Report 7081529-7 (Version None)
Quarter: 2010Q4

REPORT INFORMATION
  Report Type: 
  Country: None (occurrence: None)
  Receive Date: 20101103
  Receipt Date: 20101025
  Transmission Date: 20110411
  Serious: Yes (Hospitalization)
  Sender: FDA-Public Use
  Company Number: JP-MERCK-1007USA01873

PATIENT
  Age: 77 Year
  Sex: Female

DRUGS (9)
  1. HYZAAR [Suspect]
     Indication: HYPERTENSION
     Route: 048
     Dates: start: 20100527, end: 20100705
  2. PROHEPARUM [Suspect]
     Indication: HEPATITIS B
     Route: 048
     Dates: start: 20090101, end: 20100705
  3. GASLON N [Concomitant]
     Dosage: MORNING
     Route: 048
     Dates: start: 20090101
  4. FLUVASTATIN [Suspect]
     Indication: BLOOD CHOLESTEROL INCREASED
     Dosage: EVENING
     Route: 048
     Dates: start: 20070219, end: 20100705
  5. DEPAS [Concomitant]
     Dosage: EVENING IN MORNING
     Route: 048
     Dates: start: 20090101
  6. MYSLEE [Concomitant]
     Dosage: BEFORE RETIRING
     Route: 048
     Dates: start: 20090101
  7. GOREI-SAN [Concomitant]
     Route: 048
     Dates: start: 20090101
  8. MENIACE [Concomitant]
     Route: 048
     Dates: start: 20090101
  9. HYPEN [Concomitant]
     Route: 048

REACTIONS (4)
  - ANAPHYLACTIC SHOCK [None]
  - BLOOD PRESSURE DECREASED [None]
  - URTICARIA [None]
  - VOMITING [None]
